FAERS Safety Report 23376802 (Version 2)
Quarter: 2024Q1

REPORT INFORMATION
  Report Type: Spontaneous
  Country: US (occurrence: US)
  Receive Date: 20240108
  Receipt Date: 20240112
  Transmission Date: 20240410
  Serious: No
  Sender: FDA-Public Use
  Company Number: US-OPELLA-2024OHG000090

PATIENT
  Age: 92 Year
  Sex: Male

DRUGS (1)
  1. GOLD BOND INTENSIVE HEALING ANTI ITCH SKIN PROTECTANT [Suspect]
     Active Substance: DIMETHICONE\PRAMOXINE HYDROCHLORIDE
     Indication: Product used for unknown indication

REACTIONS (2)
  - Accidental exposure to product [Unknown]
  - No adverse event [Unknown]
